FAERS Safety Report 8073108-X (Version None)
Quarter: 2012Q1

REPORT INFORMATION
  Report Type: 
  Country: None (occurrence: None)
  Receive Date: 20120126
  Receipt Date: 20120114
  Transmission Date: 20120608
  Serious: Yes (Other)
  Sender: FDA-Public Use
  Company Number: IR-NOVOPROD-340758

PATIENT
  Age: 53 Year
  Sex: Female
  Weight: 82 kg

DRUGS (4)
  1. NOVOMIX 30 FLEXPEN [Suspect]
     Indication: TYPE 2 DIABETES MELLITUS
     Dosage: 36 IU BEFORE BREAKFAST AND 24 BEFORE DINNER
     Route: 058
     Dates: start: 20110501
  2. LEVOTHYROXINE SODIUM [Concomitant]
     Dosage: UNKNOWN
     Route: 048
  3. LOVASTATIN [Concomitant]
     Dosage: 10 MG, QD
     Route: 048
  4. METFORMIN HCL [Concomitant]
     Dosage: 1000 MG, QD
     Route: 048
     Dates: start: 20080101

REACTIONS (2)
  - RESPIRATORY DISORDER [None]
  - URTICARIA [None]
